FAERS Safety Report 13800988 (Version 1)
Quarter: 2017Q3

REPORT INFORMATION
  Report Type: Spontaneous
  Country: US (occurrence: US)
  Receive Date: 20170727
  Receipt Date: 20170727
  Transmission Date: 20171127
  Serious: Yes (Other)
  Sender: FDA-Public Use
  Company Number: US-SAOL THERAPEUTICS-2017SAO01247

PATIENT
  Sex: Female

DRUGS (3)
  1. BACLOFEN. [Suspect]
     Active Substance: BACLOFEN
     Indication: MUSCLE SPASTICITY
     Dosage: UNK
  2. BUPIVACAINE. [Suspect]
     Active Substance: BUPIVACAINE
     Dosage: UNK
  3. FENTANYL. [Suspect]
     Active Substance: FENTANYL
     Dosage: UNK

REACTIONS (3)
  - Pain [Unknown]
  - Neuralgia [Unknown]
  - Ureteral stent insertion [Unknown]

NARRATIVE: CASE EVENT DATE: 20170719
